FAERS Safety Report 7571332-3 (Version None)
Quarter: 2011Q2

REPORT INFORMATION
  Report Type: 
  Country: None (occurrence: None)
  Receive Date: 20110624
  Receipt Date: 20110616
  Transmission Date: 20111010
  Serious: Yes (Hospitalization)
  Sender: FDA-Public Use
  Company Number: B0722332A

PATIENT
  Sex: Female

DRUGS (3)
  1. AKINETON [Suspect]
     Dosage: 1MG PER DAY
     Route: 048
     Dates: start: 20100715, end: 20100817
  2. RISPERDAL [Suspect]
     Indication: PSYCHOTIC DISORDER
     Dosage: 3MG PER DAY
     Route: 048
     Dates: start: 20100626, end: 20100817
  3. LAMICTAL [Suspect]
     Indication: DEPRESSION
     Dosage: 25MG TWICE PER DAY
     Route: 048
     Dates: start: 20100813, end: 20100815

REACTIONS (1)
  - NEUROLEPTIC MALIGNANT SYNDROME [None]
